FAERS Safety Report 6204987-6 (Version None)
Quarter: 2009Q2

REPORT INFORMATION
  Report Type: 
  Country: None (occurrence: None)
  Receive Date: 20090527
  Receipt Date: 20090306
  Transmission Date: 20091009
  Serious: No
  Sender: FDA-Public Use
  Company Number: US-ABBOTT-08P-163-0493534-00

PATIENT
  Sex: Female
  Weight: 59.02 kg

DRUGS (5)
  1. SIMCOR [Suspect]
     Indication: INVESTIGATION ABNORMAL
     Dosage: FORM: 500/20 MG
     Dates: start: 20081113, end: 20081126
  2. SIMCOR [Suspect]
     Dosage: FORM: 500/20 MG
     Dates: start: 20081202, end: 20081217
  3. CLARITIN [Concomitant]
     Indication: DRUG USE FOR UNKNOWN INDICATION
  4. ASPIRIN [Concomitant]
     Indication: DRUG USE FOR UNKNOWN INDICATION
  5. SINGULAIR [Concomitant]
     Indication: DRUG USE FOR UNKNOWN INDICATION

REACTIONS (1)
  - CONSTIPATION [None]
